FAERS Safety Report 11055330 (Version 1)
Quarter: 2015Q2

REPORT INFORMATION
  Report Type: Spontaneous
  Country: US (occurrence: US)
  Receive Date: 20150422
  Receipt Date: 20150422
  Transmission Date: 20150821
  Serious: No
  Sender: FDA-Public Use
  Company Number: US-PFIZER INC-2015132935

PATIENT
  Age: 32 Year
  Sex: Female
  Weight: 55 kg

DRUGS (4)
  1. GABAPENTIN. [Suspect]
     Active Substance: GABAPENTIN
     Indication: NERVE COMPRESSION
     Dosage: 2400 MG, 1X/DAY
     Dates: start: 2014, end: 2014
  2. TYLENOL [Concomitant]
     Active Substance: ACETAMINOPHEN
     Dosage: UNK
  3. PRENATAL VITAMINS /02014401/ [Concomitant]
     Active Substance: VITAMINS
     Dosage: UNK
  4. PERCOCET [Concomitant]
     Active Substance: ACETAMINOPHEN\OXYCODONE HYDROCHLORIDE
     Indication: PAIN
     Dosage: 5/325MG, AS NEEDED

REACTIONS (1)
  - Drug ineffective [Unknown]

NARRATIVE: CASE EVENT DATE: 2014
